FAERS Safety Report 5222190-3 (Version None)
Quarter: 2007Q1

REPORT INFORMATION
  Report Type: 
  Country: None (occurrence: None)
  Receive Date: 20070129
  Receipt Date: 20060913
  Transmission Date: 20070707
  Serious: No
  Sender: FDA-Public Use
  Company Number: 2006-04938

PATIENT
  Sex: Male

DRUGS (2)
  1. BUPROPION HYDROCHLORIDE [Suspect]
     Indication: DEPRESSION
     Dosage: 200MG SINGLE DOSE
     Route: 048
     Dates: start: 20060906
  2. ZOLOFT [Concomitant]
     Indication: DEPRESSION

REACTIONS (2)
  - FEELING DRUNK [None]
  - SOMNOLENCE [None]
